FAERS Safety Report 18348606 (Version 1)
Quarter: 2020Q4

REPORT INFORMATION
  Report Type: Spontaneous
  Country: US (occurrence: US)
  Receive Date: 20201006
  Receipt Date: 20201006
  Transmission Date: 20210114
  Serious: Yes (Life-Threatening)
  Sender: FDA-Public Use
  Company Number: US-PFIZER INC-2020381323

PATIENT
  Age: 20 Month
  Sex: Female

DRUGS (3)
  1. PREDNISOLONE. [Concomitant]
     Active Substance: PREDNISOLONE
     Indication: IRRITABILITY
     Dosage: 2 MG/KG, DAILY
  2. PHYTOMENADIONE [Suspect]
     Active Substance: PHYTONADIONE
     Indication: ACUTE HEPATIC FAILURE
     Dosage: UNK
  3. PREDNISOLONE. [Concomitant]
     Active Substance: PREDNISOLONE
     Indication: OCULAR ICTERUS

REACTIONS (2)
  - Acute hepatic failure [Recovered/Resolved]
  - Drug ineffective [Recovered/Resolved]
